FAERS Safety Report 9405050 (Version 1)
Quarter: 2013Q3

REPORT INFORMATION
  Report Type: Spontaneous
  Country: US (occurrence: US)
  Receive Date: 20130717
  Receipt Date: 20130717
  Transmission Date: 20140515
  Serious: No
  Sender: FDA-Public Use
  Company Number: US-BRISTOL-MYERS SQUIBB COMPANY-18862649

PATIENT
  Age: 72 Year
  Sex: Female
  Weight: 63.49 kg

DRUGS (3)
  1. YERVOY [Suspect]
     Indication: MALIGNANT MELANOMA
     Dosage: SECOND TREATMENT ON 06MAY2013
     Dates: start: 20130415
  2. LEVOTHYROXINE [Concomitant]
  3. FOSAMAX [Concomitant]

REACTIONS (1)
  - Pruritus [Not Recovered/Not Resolved]
